FAERS Safety Report 24049346 (Version 1)
Quarter: 2024Q3

REPORT INFORMATION
  Report Type: Spontaneous
  Country: GB (occurrence: GB)
  Receive Date: 20240704
  Receipt Date: 20240704
  Transmission Date: 20241017
  Serious: No
  Sender: ALKEM
  Company Number: None

PATIENT
  Age: 25 Year
  Sex: Female
  Weight: 75 kg

DRUGS (1)
  1. IBUPROFEN [Suspect]
     Active Substance: IBUPROFEN
     Indication: Back pain
     Dosage: 100 MILLIGRAM, TABLET
     Route: 048
     Dates: start: 20240306

REACTIONS (1)
  - Gastrointestinal pain [Unknown]

NARRATIVE: CASE EVENT DATE: 20240306
